FAERS Safety Report 5808655-1 (Version None)
Quarter: 2008Q3

REPORT INFORMATION
  Report Type: 
  Country: None (occurrence: None)
  Receive Date: 20080702
  Receipt Date: 20070629
  Transmission Date: 20090109
  Serious: Yes (Life-Threatening, Hospitalization, Other)
  Sender: FDA-Public Use
  Company Number: HQWYE855529JUN07

PATIENT
  Sex: Male

DRUGS (3)
  1. ADVIL LIQUI-GELS [Suspect]
     Dosage: FOR YEARS
  2. ALEVE (CAPLET) [Suspect]
     Dosage: FOR YEARS
  3. MOTRIN [Suspect]
     Dosage: FOR YEARS

REACTIONS (1)
  - GASTRIC ULCER HAEMORRHAGE [None]
